FAERS Safety Report 5017130-6 (Version None)
Quarter: 2006Q2

REPORT INFORMATION
  Report Type: 
  Country: None (occurrence: None)
  Receive Date: 20060525
  Receipt Date: 20060522
  Transmission Date: 20061013
  Serious: Yes (Other)
  Sender: FDA-Public Use
  Company Number: 007519

PATIENT
  Age: 14 Year
  Sex: Female

DRUGS (3)
  1. CLARAVIS [Suspect]
     Indication: ACNE
     Dosage: 20 MG BID ORAL
     Route: 048
     Dates: start: 20051101, end: 20060328
  2. ORAL CONTRACEPTIVE NOS [Concomitant]
  3. ADDERALL (DEXAMFETAMINE SULFATE, AMFETAMINE SULFATE, AMFETAMINE ASPART [Concomitant]

REACTIONS (1)
  - SUICIDAL IDEATION [None]
